FAERS Safety Report 4302044-7 (Version None)
Quarter: 2004Q1

REPORT INFORMATION
  Report Type: 
  Country: None (occurrence: None)
  Receive Date: 20040223
  Receipt Date: 20040213
  Transmission Date: 20041129
  Serious: Yes (Hospitalization)
  Sender: FDA-Public Use
  Company Number: JP-ROCHE-359123

PATIENT
  Sex: Male

DRUGS (3)
  1. TAMIFLU [Suspect]
     Dosage: DOSAGE REGIMEN: 75MG X 2
     Route: 048
     Dates: start: 20040210, end: 20040215
  2. LOXONIN [Concomitant]
     Route: 048
  3. PL [Concomitant]
     Route: 048

REACTIONS (2)
  - ANXIETY [None]
  - HALLUCINATION [None]
